FAERS Safety Report 4475849-X (Version None)
Quarter: 2004Q3

REPORT INFORMATION
  Report Type: 
  Country: None (occurrence: None)
  Receive Date: 20040923
  Receipt Date: 20040806
  Transmission Date: 20050211
  Serious: No
  Sender: FDA-Public Use
  Company Number: USA040772278

PATIENT
  Age: 75 Year
  Sex: Female
  Weight: 51 kg

DRUGS (3)
  1. FORTEO [Suspect]
     Indication: OSTEOPOROSIS
     Dosage: 20 UG/1 DAY
     Dates: start: 20040629
  2. CALCIUM PLUS D [Concomitant]
  3. HYDRODIURIL [Concomitant]

REACTIONS (7)
  - CRYING [None]
  - DIFFICULTY IN WALKING [None]
  - EMOTIONAL DISTRESS [None]
  - HYPERTENSION [None]
  - MOBILITY DECREASED [None]
  - MUSCLE CRAMP [None]
  - PAIN IN EXTREMITY [None]
